FAERS Safety Report 9424880 (Version 9)
Quarter: 2013Q4

REPORT INFORMATION
  Report Type: Spontaneous
  Country: US (occurrence: US)
  Receive Date: 20130729
  Receipt Date: 20131219
  Transmission Date: 20140711
  Serious: Yes (Other)
  Sender: FDA-Public Use
  Company Number: US-PFIZER INC-2013216042

PATIENT
  Age: 76 Year
  Sex: Male
  Weight: 87.08 kg

DRUGS (3)
  1. SUTENT [Suspect]
     Indication: METASTATIC RENAL CELL CARCINOMA
     Dosage: UNK
  2. ENSURE PLUS [Suspect]
     Dosage: UNK
  3. METFORMIN HYDROCHLORIDE [Concomitant]
     Indication: DIABETES MELLITUS
     Dosage: UNK

REACTIONS (28)
  - Pancreatitis [Unknown]
  - Disease progression [Unknown]
  - Metastatic renal cell carcinoma [Unknown]
  - Feeling abnormal [Unknown]
  - Dysgeusia [Not Recovered/Not Resolved]
  - Dizziness [Unknown]
  - Epistaxis [Unknown]
  - Sinusitis [Unknown]
  - Oropharyngeal pain [Unknown]
  - Rash [Unknown]
  - Myalgia [Unknown]
  - Glossodynia [Recovered/Resolved]
  - Stomatitis [Recovering/Resolving]
  - Oral pain [Recovered/Resolved]
  - Haemoptysis [Recovered/Resolved]
  - Frustration [Unknown]
  - Fatigue [Unknown]
  - Back pain [Recovered/Resolved]
  - Burning sensation [Unknown]
  - Constipation [Unknown]
  - Insomnia [Unknown]
  - Weight decreased [Unknown]
  - Abdominal pain [Recovering/Resolving]
  - Pain [Unknown]
  - Decreased appetite [Recovered/Resolved]
  - Diarrhoea [Recovered/Resolved]
  - Blood glucose decreased [Recovered/Resolved]
  - Palmar-plantar erythrodysaesthesia syndrome [Recovered/Resolved]
